FAERS Safety Report 7216874-5 (Version None)
Quarter: 2010Q4

REPORT INFORMATION
  Report Type: 
  Country: None (occurrence: None)
  Receive Date: 20101229
  Receipt Date: 20101220
  Transmission Date: 20110411
  Serious: Yes (Hospitalization)
  Sender: FDA-Public Use
  Company Number: 2010SP048567

PATIENT
  Age: 77 Year
  Sex: Female

DRUGS (9)
  1. REFLEX (MIRTAZAPINE /01293201/) [Suspect]
     Indication: DEPRESSION
     Dosage: 15 MG; QD; PO
     Route: 048
     Dates: start: 20100617, end: 20100625
  2. HALOPERIDOL [Concomitant]
  3. CLOMIPRAMINE HYDROCHLORIDE [Concomitant]
  4. TRAZODONE HYDROCHLORIDE [Concomitant]
  5. OLANZAPINE [Concomitant]
  6. BIPERIDEN HYDROCHLORIDE TAB [Concomitant]
  7. DIAZEPAM [Concomitant]
  8. MAGNESIUM [Concomitant]
  9. NELUROLEN [Concomitant]

REACTIONS (6)
  - BLOOD UREA INCREASED [None]
  - CONDITION AGGRAVATED [None]
  - CONSTIPATION [None]
  - GAMMA-GLUTAMYLTRANSFERASE INCREASED [None]
  - PYREXIA [None]
  - RHEUMATOID ARTHRITIS [None]
